FAERS Safety Report 6716324-9 (Version None)
Quarter: 2010Q2

REPORT INFORMATION
  Report Type: 
  Country: None (occurrence: None)
  Receive Date: 20100507
  Receipt Date: 20100505
  Transmission Date: 20101027
  Serious: Yes (Death)
  Sender: FDA-Public Use
  Company Number: PHEH2010US02349

PATIENT
  Sex: Male

DRUGS (5)
  1. AFINITOR [Suspect]
     Dosage: 10 MG, UNK
     Dates: start: 20100111
  2. LOTREL [Concomitant]
     Indication: HYPERTENSION
     Dosage: 20 MG, UNK
     Route: 048
  3. TOPROL-XL [Concomitant]
     Indication: HYPERTENSION
     Dosage: 60 MG, UNK
     Route: 048
  4. PRILOSEC [Concomitant]
     Indication: DYSPEPSIA
     Dosage: 20 MG, UNK
  5. DARVOCET-N 100 [Concomitant]
     Route: 048

REACTIONS (1)
  - MALIGNANT NEOPLASM PROGRESSION [None]
